FAERS Safety Report 6831043-6 (Version None)
Quarter: 2010Q3

REPORT INFORMATION
  Report Type: 
  Country: None (occurrence: None)
  Receive Date: 20100712
  Receipt Date: 20070130
  Transmission Date: 20110219
  Serious: Yes (Other)
  Sender: FDA-Public Use
  Company Number: PFIZER INC-2007008502

PATIENT
  Sex: Female
  Weight: 45.4 kg

DRUGS (2)
  1. CHANTIX [Suspect]
     Indication: SMOKING CESSATION THERAPY
     Route: 065
     Dates: start: 20070111
  2. KLONOPIN [Concomitant]
     Route: 065

REACTIONS (10)
  - ANXIETY [None]
  - ARTHRALGIA [None]
  - BREAST PAIN [None]
  - DEPRESSION [None]
  - FATIGUE [None]
  - FEELING ABNORMAL [None]
  - HEADACHE [None]
  - MALAISE [None]
  - MENSTRUAL DISORDER [None]
  - NAUSEA [None]
